FAERS Safety Report 5092844-0 (Version None)
Quarter: 2006Q3

REPORT INFORMATION
  Report Type: 
  Country: None (occurrence: None)
  Receive Date: 20060828
  Receipt Date: 20060816
  Transmission Date: 20061208
  Serious: Yes (Hospitalization, Other)
  Sender: FDA-Public Use
  Company Number: 2006-BP-09648RO

PATIENT
  Age: 32 Year
  Sex: Female

DRUGS (5)
  1. CYCLOPHOSPHAMIDE [Suspect]
     Indication: BREAST CANCER
     Dosage: (REFER TO TEXT),
  2. CYCLOPHOSPHAMIDE [Suspect]
     Indication: CHEMOTHERAPY
     Dosage: (REFER TO TEXT),
  3. PACLITAXEL [Suspect]
     Indication: BREAST CANCER
     Dosage: (REFER TO TEXT)
  4. PACLITAXEL [Suspect]
     Indication: CHEMOTHERAPY
     Dosage: (REFER TO TEXT)
  5. NEULASTA [Suspect]
     Indication: INFECTION PROPHYLAXIS
     Dosage: (6 MG, REFER TO TEXT), SC
     Route: 058

REACTIONS (2)
  - NEUTROPENIA [None]
  - PYREXIA [None]
